FAERS Safety Report 5614389-9 (Version None)
Quarter: 2008Q1

REPORT INFORMATION
  Report Type: 
  Country: None (occurrence: None)
  Receive Date: 20080205
  Receipt Date: 20080125
  Transmission Date: 20080703
  Serious: Yes (Other)
  Sender: FDA-Public Use
  Company Number: US-PFIZER INC-2008009087

PATIENT
  Age: 55 Year
  Sex: Female
  Weight: 50 kg

DRUGS (4)
  1. CHANTIX [Suspect]
     Indication: SMOKING CESSATION THERAPY
     Route: 048
  2. VITAMINS [Concomitant]
  3. MEDROXYPROGESTERONE [Concomitant]
  4. ESTROGENS ESTERFIED/METHYLTESTOSTERONE [Concomitant]

REACTIONS (3)
  - HYPERSENSITIVITY [None]
  - LOCAL SWELLING [None]
  - URTICARIA [None]
